FAERS Safety Report 25198810 (Version 3)
Quarter: 2025Q3

REPORT INFORMATION
  Report Type: Report from Study
  Country: US (occurrence: US)
  Receive Date: 20250415
  Receipt Date: 20250904
  Transmission Date: 20251021
  Serious: Yes (Other)
  Sender: SUNOVION
  Company Number: US-SUMITOMO PHARMA SWITZERLAND GMBH-2025SPA003357

PATIENT
  Age: 79 Year
  Sex: Male

DRUGS (11)
  1. ORGOVYX [Suspect]
     Active Substance: RELUGOLIX
     Indication: Prostate cancer
     Dosage: 360 MG, SINGLE
     Route: 048
     Dates: start: 20240706, end: 20240706
  2. ORGOVYX [Suspect]
     Active Substance: RELUGOLIX
     Dosage: 120 MG, QD
     Route: 048
     Dates: start: 20240707
  3. ACETAMINOPHEN [Concomitant]
     Active Substance: ACETAMINOPHEN
  4. ALBUTEROL SULFATE [Concomitant]
     Active Substance: ALBUTEROL SULFATE
  5. ASCORBIC ACID [Concomitant]
     Active Substance: ASCORBIC ACID
  6. BRIMONIDINE [Concomitant]
     Active Substance: BRIMONIDINE TARTRATE
  7. KETOCONAZOLE [Concomitant]
     Active Substance: KETOCONAZOLE
     Route: 061
  8. LATANOPROST [Concomitant]
     Active Substance: LATANOPROST
     Route: 047
  9. SOTALOL [Concomitant]
     Active Substance: SOTALOL
  10. TAMSULOSIN [Concomitant]
     Active Substance: TAMSULOSIN
  11. Turkey tail [Concomitant]

REACTIONS (4)
  - Skin neoplasm excision [Unknown]
  - Acinetobacter infection [Unknown]
  - Asthenia [Unknown]
  - Fatigue [Unknown]
